FAERS Safety Report 19803919 (Version 1)
Quarter: 2021Q3

REPORT INFORMATION
  Report Type: Spontaneous
  Country: ES (occurrence: ES)
  Receive Date: 20210908
  Receipt Date: 20210908
  Transmission Date: 20211014
  Serious: Yes (Other)
  Sender: FDA-Public Use
  Company Number: ES-ACCORD-237968

PATIENT
  Age: 54 Year
  Sex: Female
  Weight: 55 kg

DRUGS (2)
  1. MODERNA COVID?19 VACCINE [Suspect]
     Active Substance: CX-024414
     Indication: COVID-19 IMMUNISATION
     Dosage: INJECTABLE DISPERSION, 2 DOSES ADMINISTERED ? ADMINISTRATION SITE: LEFT ARM 2 DOSES
     Dates: start: 20210622, end: 20210622
  2. METHOTREXATE. [Suspect]
     Active Substance: METHOTREXATE
     Indication: IMMUNOSUPPRESSION
     Dosage: THE METHOTREXATE WAS SUSPENDED 15 DAYS BEFORE THE DOSES OF THE VACCINES,
     Dates: start: 2020, end: 202106

REACTIONS (3)
  - Vaccination site lymphadenopathy [Recovering/Resolving]
  - Fatigue [Recovering/Resolving]
  - Erythema nodosum [Recovering/Resolving]

NARRATIVE: CASE EVENT DATE: 20210622
